FAERS Safety Report 9373928 (Version 1)
Quarter: 2013Q2

REPORT INFORMATION
  Report Type: Report from Study
  Country: US (occurrence: US)
  Receive Date: 20130628
  Receipt Date: 20130628
  Transmission Date: 20140414
  Serious: Yes (Hospitalization)
  Sender: FDA-Public Use
  Company Number: US-ROCHE-1241431

PATIENT
  Sex: Female

DRUGS (2)
  1. PERJETA [Suspect]
     Indication: BREAST CANCER METASTATIC
     Dosage: DOSE UNKNOWN
     Route: 065
     Dates: start: 20130605
  2. HERCEPTIN [Suspect]
     Indication: BREAST CANCER METASTATIC
     Dosage: DOSE UNKNOWN
     Route: 065
     Dates: start: 20130605

REACTIONS (1)
  - Cerebrovascular accident [Not Recovered/Not Resolved]
